FAERS Safety Report 8839348 (Version 1)
Quarter: 2012Q4

REPORT INFORMATION
  Report Type: Spontaneous
  Country: US (occurrence: None)
  Receive Date: 20121012
  Receipt Date: 20121012
  Transmission Date: 20130627
  Serious: Yes (Death)
  Sender: FDA-Public Use
  Company Number: None

PATIENT
  Age: 44 Year
  Sex: Female
  Weight: 53.52 kg

DRUGS (3)
  1. AFINITOR [Suspect]
     Indication: BREAST CANCER
     Route: 048
  2. FASLODEX [Concomitant]
  3. XGEVA [Concomitant]

REACTIONS (2)
  - Hepatic failure [None]
  - Hepatic cirrhosis [None]
